FAERS Safety Report 21127548 (Version 1)
Quarter: 2022Q3

REPORT INFORMATION
  Report Type: Spontaneous
  Country: US (occurrence: US)
  Receive Date: 20220725
  Receipt Date: 20220725
  Transmission Date: 20221026
  Serious: No
  Sender: FDA-Public Use
  Company Number: US-ABBVIE-21K-163-4155285-00

PATIENT

DRUGS (2)
  1. SYNTHROID [Suspect]
     Active Substance: LEVOTHYROXINE SODIUM
     Indication: Hypothyroidism
     Route: 048
  2. IODINE [Suspect]
     Active Substance: IODINE
     Indication: Product used for unknown indication
     Route: 065

REACTIONS (8)
  - Injury [Unknown]
  - Lethargy [Unknown]
  - Nasopharyngitis [Unknown]
  - Hunger [Unknown]
  - Weight increased [Unknown]
  - Iodine deficiency [Unknown]
  - Emotional distress [Unknown]
  - Drug ineffective [Unknown]
